FAERS Safety Report 8390038-4 (Version None)
Quarter: 2012Q1

REPORT INFORMATION
  Report Type: 
  Country: None (occurrence: None)
  Receive Date: 20120323
  Receipt Date: 20110331
  Transmission Date: 20120608
  Serious: Yes (Hospitalization)
  Sender: FDA-Public Use
  Company Number: 163-21880-11040192

PATIENT
  Age: 83 Year
  Sex: Male

DRUGS (2)
  1. REVLIMID [Suspect]
     Indication: MULTIPLE MYELOMA
     Dosage: 20 MG, 2 DAYS PER WEEK, PO, 10 MG, DAYS 5 DAYS PER WEEK FOR 2 WEEKS, PO
     Route: 048
     Dates: start: 20091118, end: 20110228
  2. REVLIMID [Suspect]
     Indication: MULTIPLE MYELOMA
     Dosage: 20 MG, 2 DAYS PER WEEK, PO, 10 MG, DAYS 5 DAYS PER WEEK FOR 2 WEEKS, PO
     Route: 048
     Dates: start: 20091118, end: 20110228

REACTIONS (2)
  - DYSPNOEA [None]
  - PNEUMONIA [None]
